FAERS Safety Report 16898682 (Version 1)
Quarter: 2019Q4

REPORT INFORMATION
  Report Type: Spontaneous
  Country: JP (occurrence: JP)
  Receive Date: 20191009
  Receipt Date: 20191009
  Transmission Date: 20200122
  Serious: Yes (Other)
  Sender: FDA-Public Use
  Company Number: JP-PFIZER INC-2019427319

PATIENT
  Age: 86 Year
  Sex: Female

DRUGS (2)
  1. CEFTRIAXONE SODIUM. [Suspect]
     Active Substance: CEFTRIAXONE SODIUM
     Indication: ENDOCARDITIS BACTERIAL
     Dosage: 2 G, DAILY
  2. AMPICILLIN/SULBACTAM [Concomitant]
     Indication: ENDOCARDITIS BACTERIAL
     Dosage: 3 G, DAILY

REACTIONS (1)
  - Cholelithiasis [Recovered/Resolved]
